FAERS Safety Report 4441899-2 (Version None)
Quarter: 2004Q3

REPORT INFORMATION
  Report Type: 
  Country: None (occurrence: None)
  Receive Date: 20040901
  Receipt Date: 20040816
  Transmission Date: 20050211
  Serious: Yes (Hospitalization)
  Sender: FDA-Public Use
  Company Number: 206493

PATIENT
  Age: 60 Year
  Sex: Female
  Weight: 77.7 kg

DRUGS (10)
  1. HERCEPTIN [Suspect]
     Indication: BREAST CANCER
     Dosage: SEE IMAGE
     Route: 042
     Dates: start: 20031201, end: 20031201
  2. HERCEPTIN [Suspect]
     Indication: BREAST CANCER
     Dosage: SEE IMAGE
     Route: 042
     Dates: start: 20031222, end: 20040406
  3. HERCEPTIN [Suspect]
     Indication: BREAST CANCER
     Dosage: SEE IMAGE
     Route: 042
     Dates: start: 20040414
  4. AMLODIPINE (AMLODIPINE BESYLATE) [Concomitant]
  5. BECLOMETASONE INHAL.AER. (BECLOMETHASONE DIPROPIONATE) [Concomitant]
  6. COMBIVENT INHALER (ALBUTEROL SULFATE, ALBUTEROL, IPRATROPIUM BROMIDE) [Concomitant]
  7. DIHYDROCODEINE (DIHYDROCODEINE BITARTRATE) [Concomitant]
  8. AMITRIPTYLINE HCL [Concomitant]
  9. BENDROFLUAZIDE (BENDROFLUMETHIAZIDE) [Concomitant]
  10. ASPIRIN [Concomitant]

REACTIONS (4)
  - CHRONIC OBSTRUCTIVE AIRWAYS DISEASE EXACERBATED [None]
  - MOUTH ULCERATION [None]
  - ORAL CANDIDIASIS [None]
  - PYREXIA [None]
